FAERS Safety Report 5576932-8 (Version None)
Quarter: 2007Q4

REPORT INFORMATION
  Report Type: 
  Country: None (occurrence: None)
  Receive Date: 20071130
  Receipt Date: 20070718
  Transmission Date: 20080405
  Serious: No
  Sender: FDA-Public Use
  Company Number: US200707006768

PATIENT
  Age: 37 Year
  Sex: Female

DRUGS (8)
  1. BYETTA [Suspect]
     Indication: TYPE 2 DIABETES MELLITUS
     Dosage: 5 UG, 2/D, SUBCUTANEOUS, 10 UG, 2/D, SUBCUTANEOUS
     Route: 058
     Dates: start: 20070201, end: 20070630
  2. BYETTA [Suspect]
     Indication: TYPE 2 DIABETES MELLITUS
     Dosage: 5 UG, 2/D, SUBCUTANEOUS, 10 UG, 2/D, SUBCUTANEOUS
     Route: 058
     Dates: start: 20070701
  3. METFORMIN HCL [Concomitant]
  4. PROZAC [Concomitant]
  5. NORVASC [Concomitant]
  6. RESTASIS (CICLOSPORIN) [Concomitant]
  7. ZYRTEC-D 12 HOUR [Concomitant]
  8. AMBIEN [Concomitant]

REACTIONS (6)
  - DIARRHOEA [None]
  - FAECES DISCOLOURED [None]
  - GASTROOESOPHAGEAL REFLUX DISEASE [None]
  - NAUSEA [None]
  - SINUSITIS [None]
  - STOMACH DISCOMFORT [None]
